FAERS Safety Report 9963912 (Version 1)
Quarter: 2014Q1

REPORT INFORMATION
  Report Type: Spontaneous
  Country: DE (occurrence: DE)
  Receive Date: 20140305
  Receipt Date: 20140305
  Transmission Date: 20141002
  Serious: Yes (Other)
  Sender: FDA-Public Use
  Company Number: GXKR2014DE001021

PATIENT
  Age: 17 Year
  Sex: Female

DRUGS (1)
  1. DIENOGEST\ETHINYL ESTRADIOL [Suspect]
     Route: 048

REACTIONS (3)
  - Drug-induced liver injury [Unknown]
  - Transaminases increased [Unknown]
  - Biliary colic [Unknown]
